FAERS Safety Report 17518845 (Version 5)
Quarter: 2020Q2

REPORT INFORMATION
  Report Type: Report from Study
  Country: CO (occurrence: CO)
  Receive Date: 20200309
  Receipt Date: 20200528
  Transmission Date: 20200713
  Serious: Yes (Hospitalization)
  Sender: FDA-Public Use
  Company Number: NVSC2020CO053898

PATIENT
  Age: 88 Year
  Sex: Female
  Weight: 43 kg

DRUGS (5)
  1. LOSARTAN POTASSIUM. [Suspect]
     Active Substance: LOSARTAN POTASSIUM
     Indication: PRODUCT USED FOR UNKNOWN INDICATION
     Dosage: UNK
     Route: 065
  2. APIXABAN [Concomitant]
     Active Substance: APIXABAN
     Indication: PRODUCT USED FOR UNKNOWN INDICATION
     Route: 065
  3. AMLODIPINE BESILATE [Suspect]
     Active Substance: AMLODIPINE BESYLATE
     Indication: PRODUCT USED FOR UNKNOWN INDICATION
     Dosage: UNK
     Route: 065
  4. ATORVASTATIN CALCIUM. [Suspect]
     Active Substance: ATORVASTATIN CALCIUM
     Indication: PRODUCT USED FOR UNKNOWN INDICATION
     Dosage: UNK
     Route: 065
  5. SANDOSTATIN LAR DEPOT [Suspect]
     Active Substance: OCTREOTIDE ACETATE
     Indication: ACROMEGALY
     Dosage: 20 MG, QMO
     Route: 030
     Dates: start: 201910

REACTIONS (16)
  - Back pain [Unknown]
  - Aortic aneurysm [Unknown]
  - Inflammation [Not Recovered/Not Resolved]
  - General physical health deterioration [Unknown]
  - Urinary tract infection [Unknown]
  - Abdominal pain [Unknown]
  - Peripheral swelling [Not Recovered/Not Resolved]
  - Anaemia [Unknown]
  - Malaise [Unknown]
  - Cholelithiasis [Unknown]
  - Pyrexia [Unknown]
  - Cardiac disorder [Unknown]
  - Gastritis [Unknown]
  - Abdominal pain upper [Unknown]
  - Infection [Unknown]
  - Hypotension [Unknown]

NARRATIVE: CASE EVENT DATE: 20200305
